FAERS Safety Report 10731596 (Version 2)
Quarter: 2015Q1

REPORT INFORMATION
  Report Type: Report from Study
  Country: CA (occurrence: CA)
  Receive Date: 20150123
  Receipt Date: 20150211
  Transmission Date: 20150721
  Serious: Yes (Hospitalization, Other)
  Sender: FDA-Public Use
  Company Number: CA-ROCHE-1523690

PATIENT
  Sex: Female
  Weight: 70.82 kg

DRUGS (12)
  1. RITUXAN [Suspect]
     Active Substance: RITUXIMAB
     Indication: COLD TYPE HAEMOLYTIC ANAEMIA
     Dosage: LAST RITUXIMAB INFUSION 28/NOV/2013
     Route: 042
     Dates: start: 20131107
  2. METFORMIN [Concomitant]
     Active Substance: METFORMIN HYDROCHLORIDE
  3. PANTOLOC [Concomitant]
     Active Substance: PANTOPRAZOLE SODIUM
  4. WARFARIN [Concomitant]
     Active Substance: WARFARIN
  5. OXYBUTYNIN [Concomitant]
     Active Substance: OXYBUTYNIN
  6. DIGOXIN. [Concomitant]
     Active Substance: DIGOXIN
  7. FOLIC ACID. [Concomitant]
     Active Substance: FOLIC ACID
  8. ATACAND [Concomitant]
     Active Substance: CANDESARTAN CILEXETIL
  9. MORPHINE [Concomitant]
     Active Substance: MORPHINE
     Route: 065
  10. AMLODIPINE [Concomitant]
     Active Substance: AMLODIPINE BESYLATE
  11. VITAMIN E [Concomitant]
     Active Substance: .ALPHA.-TOCOPHEROL
  12. CALTRATE [Concomitant]
     Active Substance: CALCIUM CARBONATE

REACTIONS (13)
  - Cold type haemolytic anaemia [Unknown]
  - Bacterial infection [Unknown]
  - Dermatitis [Recovered/Resolved]
  - Atrial fibrillation [Unknown]
  - Drug hypersensitivity [Not Recovered/Not Resolved]
  - Off label use [Unknown]
  - Haemoglobin decreased [Not Recovered/Not Resolved]
  - Fall [Unknown]
  - Platelet count decreased [Not Recovered/Not Resolved]
  - Urinary tract infection [Recovered/Resolved]
  - Fractured coccyx [Unknown]
  - Diabetes mellitus [Unknown]
  - Weight decreased [Unknown]

NARRATIVE: CASE EVENT DATE: 2014
